FAERS Safety Report 20736546 (Version 1)
Quarter: 2022Q2

REPORT INFORMATION
  Report Type: Report from Study
  Country: US (occurrence: US)
  Receive Date: 20220421
  Receipt Date: 20220421
  Transmission Date: 20220721
  Serious: Yes (Other)
  Sender: FDA-Public Use
  Company Number: US-SUNOVION-2022SUN001246

PATIENT
  Age: 69 Year
  Sex: Male

DRUGS (1)
  1. KYNMOBI [Suspect]
     Active Substance: APOMORPHINE HYDROCHLORIDE
     Dosage: 10 MG
     Route: 060
     Dates: start: 20220416

REACTIONS (17)
  - Syncope [Unknown]
  - Muscular weakness [Unknown]
  - Restlessness [Unknown]
  - Wheezing [Unknown]
  - Eye movement disorder [Unknown]
  - Urinary incontinence [Unknown]
  - Cough [Unknown]
  - Gastrooesophageal reflux disease [Unknown]
  - Weight bearing difficulty [Unknown]
  - Panic disorder [Unknown]
  - Tension [Recovered/Resolved]
  - Retching [Unknown]
  - Asthenia [Unknown]
  - Heart rate decreased [Unknown]
  - Insomnia [Unknown]
  - Dyspnoea [Recovered/Resolved]
  - Blood pressure decreased [Unknown]

NARRATIVE: CASE EVENT DATE: 20220416
